FAERS Safety Report 4515292-8 (Version None)
Quarter: 2004Q4

REPORT INFORMATION
  Report Type: 
  Country: None (occurrence: None)
  Receive Date: 20041126
  Receipt Date: 20041115
  Transmission Date: 20050328
  Serious: Yes (Hospitalization)
  Sender: FDA-Public Use
  Company Number: 2004PL000071

PATIENT
  Age: 29 Year
  Sex: Male

DRUGS (3)
  1. AZATHIOPRINE [Suspect]
     Indication: CROHN'S DISEASE
     Dosage: 60 MG DAILY ORAL
     Route: 048
     Dates: start: 20020701
  2. INFLIXIMAB (INFLIXIMAB) [Suspect]
     Indication: CROHN'S DISEASE
     Dosage: 375 MG; X1; INTRAVENOUS
     Route: 042
     Dates: start: 20020801
  3. PREDNISOLONE [Concomitant]

REACTIONS (3)
  - HYPOXIA [None]
  - PNEUMOCYSTIS CARINII PNEUMONIA [None]
  - PO2 DECREASED [None]
